FAERS Safety Report 4608401-3 (Version None)
Quarter: 2005Q1

REPORT INFORMATION
  Report Type: 
  Country: None (occurrence: None)
  Receive Date: 20050311
  Receipt Date: 20050311
  Transmission Date: 20050727
  Serious: Yes (Other)
  Sender: FDA-Public Use
  Company Number: None

PATIENT
  Age: 88 Year
  Sex: Male
  Weight: 82 kg

DRUGS (6)
  1. TEQUIN [Suspect]
     Dosage: 400 MG IV Q
     Route: 042
     Dates: start: 20040929, end: 20041005
  2. DIGOXIN [Concomitant]
  3. NITROGLYCERIN [Concomitant]
  4. PLAVIX [Concomitant]
  5. CLINDAMYCIN [Concomitant]
  6. SOLU-MEDROL [Concomitant]

REACTIONS (1)
  - HYPOGLYCAEMIA [None]
